FAERS Safety Report 17267786 (Version 3)
Quarter: 2020Q2

REPORT INFORMATION
  Report Type: Report from Study
  Country: US (occurrence: US)
  Receive Date: 20200114
  Receipt Date: 20200407
  Transmission Date: 20200713
  Serious: No
  Sender: FDA-Public Use
  Company Number: NVSC2020US006595

PATIENT
  Age: 55 Year
  Sex: Male

DRUGS (2)
  1. COSENTYX [Suspect]
     Active Substance: SECUKINUMAB
     Route: 058
  2. COSENTYX [Suspect]
     Active Substance: SECUKINUMAB
     Indication: PSORIASIS
     Dosage: 300 MG, QMO
     Route: 058

REACTIONS (4)
  - Drug hypersensitivity [Unknown]
  - Product dose omission [Unknown]
  - Contraindication to medical treatment [Unknown]
  - Drug intolerance [Unknown]

NARRATIVE: CASE EVENT DATE: 20200101
